FAERS Safety Report 25356124 (Version 2)
Quarter: 2025Q2

REPORT INFORMATION
  Report Type: Report from Study
  Country: KR (occurrence: KR)
  Receive Date: 20250525
  Receipt Date: 20250609
  Transmission Date: 20250716
  Serious: Yes (Hospitalization, Other)
  Sender: JOHNSON AND JOHNSON
  Company Number: KR-JNJFOC-20250527766

PATIENT
  Age: 73 Year
  Sex: Female
  Weight: 41.6 kg

DRUGS (9)
  1. LAZERTINIB [Suspect]
     Active Substance: LAZERTINIB
     Indication: Non-small cell lung cancer
     Route: 048
     Dates: start: 20240902, end: 20241015
  2. NEXIUM [Concomitant]
     Active Substance: ESOMEPRAZOLE MAGNESIUM
     Indication: Gastrooesophageal reflux disease
     Dates: start: 20240902, end: 20241111
  3. GASMOTIN [LEVOSULPIRIDE] [Concomitant]
     Indication: Gastritis prophylaxis
     Dates: start: 20240902, end: 20241111
  4. ERDOSTEINE [Concomitant]
     Active Substance: ERDOSTEINE
     Indication: Prophylaxis
     Route: 048
     Dates: start: 20240821, end: 20241111
  5. LEVODROPROPIZINE [Concomitant]
     Active Substance: LEVODROPROPIZINE
     Indication: Prophylaxis
     Route: 048
     Dates: start: 20240821, end: 20240922
  6. LEVODROPROPIZINE [Concomitant]
     Active Substance: LEVODROPROPIZINE
     Route: 048
     Dates: start: 20240923, end: 20241111
  7. CODEINE [Concomitant]
     Active Substance: CODEINE
     Indication: Prophylaxis
     Route: 048
     Dates: start: 20240820, end: 20241111
  8. COUGH SYRUP [AMMONIUM CHLORIDE;CHLORPHENAMINE MALEATE;DIHYDROCODEINE B [Concomitant]
     Indication: Prophylaxis
     Route: 048
     Dates: start: 20240821, end: 20241111
  9. MEGACE F [Concomitant]
     Indication: Prophylaxis
     Route: 048
     Dates: start: 20240823, end: 20241111

REACTIONS (1)
  - Stevens-Johnson syndrome [Not Recovered/Not Resolved]

NARRATIVE: CASE EVENT DATE: 20241010
